FAERS Safety Report 6814732-9 (Version None)
Quarter: 2010Q2

REPORT INFORMATION
  Report Type: 
  Country: None (occurrence: None)
  Receive Date: 20100629
  Receipt Date: 20100616
  Transmission Date: 20101027
  Serious: Yes (Disabling, Other)
  Sender: FDA-Public Use
  Company Number: 2010AL003258

PATIENT
  Age: 64 Year
  Sex: Male

DRUGS (4)
  1. TRAMADOL HCL [Suspect]
  2. VFEND [Concomitant]
  3. CELEBREX [Concomitant]
  4. KETOPROFEN [Concomitant]

REACTIONS (4)
  - CONSTIPATION [None]
  - DRUG INEFFECTIVE [None]
  - FEELING ABNORMAL [None]
  - HYPOAESTHESIA [None]
